FAERS Safety Report 12099980 (Version 1)
Quarter: 2016Q1

REPORT INFORMATION
  Report Type: Spontaneous
  Country: US (occurrence: None)
  Receive Date: 20160219
  Receipt Date: 20160219
  Transmission Date: 20160526
  Serious: No
  Sender: FDA-Public Use
  Company Number: None

PATIENT
  Age: 59 Year
  Sex: Male
  Weight: 83.92 kg

DRUGS (1)
  1. VEREGEN [Suspect]
     Active Substance: SINECATECHINS
     Indication: ANOGENITAL WARTS
     Dosage: APPLY TO AFFECTED AREA  THREE TIMES DAILY  ?APPLIED TO A SURFACE, USUALLY THE SKIN
     Route: 061
     Dates: start: 20160204, end: 20160217

REACTIONS (1)
  - Fungal infection [None]

NARRATIVE: CASE EVENT DATE: 20160216
